FAERS Safety Report 4679119-6 (Version None)
Quarter: 2005Q2

REPORT INFORMATION
  Report Type: 
  Country: None (occurrence: None)
  Receive Date: 20050527
  Receipt Date: 20050222
  Transmission Date: 20051028
  Serious: No
  Sender: FDA-Public Use
  Company Number: PHEH2005US02358

PATIENT
  Age: 75 Year
  Sex: Female

DRUGS (1)
  1. ZELNORM [Suspect]
     Indication: CONSTIPATION
     Dosage: 6 MG, TID, ORAL
     Route: 048
     Dates: start: 20050101

REACTIONS (3)
  - ASTHENOPIA [None]
  - CONDITION AGGRAVATED [None]
  - FLATULENCE [None]
